FAERS Safety Report 8722825 (Version 2)
Quarter: 2012Q4

REPORT INFORMATION
  Report Type: 
  Country: US (occurrence: US)
  Receive Date: 20120814
  Receipt Date: 20121008
  Transmission Date: 20130627
  Serious: Yes (Hospitalization, Other)
  Sender: FDA-Public Use
  Company Number: US-ROCHE-1100734

PATIENT
  Age: 41 Year
  Sex: Male

DRUGS (5)
  1. ACTIVASE [Suspect]
     Indication: ACUTE MYOCARDIAL INFARCTION
     Route: 065
     Dates: start: 19911104, end: 19911104
  2. HEPARIN [Concomitant]
  3. NITROGLYCERIN [Concomitant]
  4. ASCRIPTIN NOS [Concomitant]
  5. HYDROCHLOROTHIAZIDE [Concomitant]
     Route: 048

REACTIONS (2)
  - Anxiety [Recovering/Resolving]
  - Mouth haemorrhage [Recovered/Resolved]
